FAERS Safety Report 8586201 (Version 7)
Quarter: 2014Q1

REPORT INFORMATION
  Report Type: Report from Study
  Country: US (occurrence: US)
  Receive Date: 20120530
  Receipt Date: 20140313
  Transmission Date: 20141002
  Serious: Yes (Hospitalization)
  Sender: FDA-Public Use
  Company Number: US-GLAXOSMITHKLINE-A0967020A

PATIENT
  Sex: Female

DRUGS (4)
  1. ALBUTEROL [Suspect]
     Indication: CHRONIC OBSTRUCTIVE PULMONARY DISEASE
     Route: 055
     Dates: start: 1991
  2. STEROIDS [Suspect]
     Indication: DYSPNOEA
     Route: 065
  3. DEXPAK [Suspect]
     Indication: PRODUCT USED FOR UNKNOWN INDICATION
  4. UNKNOWN MEDICATION [Concomitant]

REACTIONS (17)
  - Abdominal distension [Unknown]
  - Dyspnoea [Unknown]
  - Amnesia [Unknown]
  - Memory impairment [Unknown]
  - Muscular weakness [Unknown]
  - Chronic obstructive pulmonary disease [Unknown]
  - Asthma [Unknown]
  - Feeling abnormal [Unknown]
  - Anxiety [Unknown]
  - Depression [Unknown]
  - Treatment noncompliance [Unknown]
  - Swelling [Unknown]
  - Violence-related symptom [Unknown]
  - Asthenia [Unknown]
  - Musculoskeletal disorder [Unknown]
  - Musculoskeletal discomfort [Unknown]
  - Tremor [Recovered/Resolved]
